FAERS Safety Report 4489434-7 (Version None)
Quarter: 2004Q4

REPORT INFORMATION
  Report Type: 
  Country: None (occurrence: None)
  Receive Date: 20041101
  Receipt Date: 20040121
  Transmission Date: 20050328
  Serious: Yes (Hospitalization)
  Sender: FDA-Public Use
  Company Number: 200413291JP

PATIENT
  Age: 56 Year
  Sex: Male
  Weight: 59 kg

DRUGS (9)
  1. ARAVA [Suspect]
     Indication: RHEUMATOID ARTHRITIS
     Route: 048
     Dates: start: 20040107, end: 20040109
  2. PREDNISOLONE [Concomitant]
     Indication: RHEUMATOID ARTHRITIS
     Route: 048
  3. MARZULENE [Concomitant]
     Indication: GASTRIC ULCER
     Route: 048
  4. FELDENE [Concomitant]
     Indication: RHEUMATOID ARTHRITIS
     Route: 054
  5. RIMATIL [Concomitant]
     Indication: RHEUMATOID ARTHRITIS
     Route: 048
     Dates: end: 20040106
  6. RHEUMATREX [Concomitant]
     Indication: RHEUMATOID ARTHRITIS
     Dosage: DOSE: 8MG/WEEK
     Route: 048
     Dates: end: 20040106
  7. CYTOTEC [Concomitant]
     Indication: GASTRIC ULCER
     Route: 048
  8. GASTER [Concomitant]
     Indication: GASTRIC ULCER
     Route: 048
  9. FLOMOX [Concomitant]
     Indication: PURULENCE
     Route: 048
     Dates: start: 20040526, end: 20040803

REACTIONS (12)
  - ABSCESS LIMB [None]
  - DIVERTICULITIS [None]
  - EOSINOPHIL PERCENTAGE INCREASED [None]
  - HAEMOGLOBIN DECREASED [None]
  - LYMPHOCYTE PERCENTAGE DECREASED [None]
  - MEAN CELL HAEMOGLOBIN CONCENTRATION DECREASED [None]
  - NEPHROLITHIASIS [None]
  - PURULENT DISCHARGE [None]
  - RED BLOOD CELL COUNT DECREASED [None]
  - STAPHYLOCOCCAL INFECTION [None]
  - URINARY OCCULT BLOOD POSITIVE [None]
  - URINARY SEDIMENT PRESENT [None]
